FAERS Safety Report 7486161-9 (Version None)
Quarter: 2011Q2

REPORT INFORMATION
  Report Type: 
  Country: None (occurrence: None)
  Receive Date: 20110517
  Receipt Date: 20110412
  Transmission Date: 20111010
  Serious: Yes (Other)
  Sender: FDA-Public Use
  Company Number: US-BAYER-201034567NA

PATIENT
  Age: 38 Year
  Sex: Female
  Weight: 60 kg

DRUGS (6)
  1. TOPAMAX [Concomitant]
     Dosage: 200 MG, QD
  2. WELLBUTRIN [Concomitant]
     Dosage: 150 MG, QD
  3. YAZ [Suspect]
     Indication: PRODUCT USED FOR UNKNOWN INDICATION
     Route: 048
     Dates: start: 20081216, end: 20100303
  4. CORGARD [Concomitant]
     Dosage: 125 MG, QD
  5. IMITREX [Concomitant]
     Dosage: UNK UNK, PRN
  6. CYMBALTA [Concomitant]
     Dosage: 60 MG, QD

REACTIONS (4)
  - GALLBLADDER DISORDER [None]
  - CHOLESTEROSIS [None]
  - BILIARY DYSKINESIA [None]
  - CHOLECYSTITIS CHRONIC [None]
